FAERS Safety Report 19001400 (Version 1)
Quarter: 2021Q1

REPORT INFORMATION
  Report Type: Spontaneous
  Country: US (occurrence: US)
  Receive Date: 20210311
  Receipt Date: 20210311
  Transmission Date: 20210420
  Serious: No
  Sender: FDA-Public Use
  Company Number: US-GLAXOSMITHKLINE-US2021060212

PATIENT
  Age: 67 Year
  Sex: Male

DRUGS (1)
  1. FLONASE ALLERGY RELIEF [Suspect]
     Active Substance: FLUTICASONE PROPIONATE
     Indication: HYPERSENSITIVITY
     Dosage: 4 PUFF(S), QD, 2 SPRAYS IN EACH NOSTRIL

REACTIONS (3)
  - Dizziness [Unknown]
  - Therapeutic response unexpected [Unknown]
  - Balance disorder [Unknown]
